FAERS Safety Report 17165851 (Version 1)
Quarter: 2019Q4

REPORT INFORMATION
  Report Type: Spontaneous
  Country: AU (occurrence: AU)
  Receive Date: 20191217
  Receipt Date: 20191217
  Transmission Date: 20200122
  Serious: Yes (Hospitalization, Other)
  Sender: FDA-Public Use
  Company Number: AU-ABBVIE-19K-008-3008809-00

PATIENT
  Age: 42 Year
  Sex: Female

DRUGS (7)
  1. ANAKINRA [Suspect]
     Active Substance: ANAKINRA
     Indication: HIDRADENITIS
     Route: 065
     Dates: start: 2015
  2. METHOTREXATE. [Suspect]
     Active Substance: METHOTREXATE
     Indication: HIDRADENITIS
     Route: 048
  3. MINOCYCLINE HYDROCHLORIDE DIHYDRATE [Suspect]
     Active Substance: MINOCYCLINE HYDROCHLORIDE DIHYDRATE
     Indication: HIDRADENITIS
     Route: 065
  4. DOXYCYCLINE. [Suspect]
     Active Substance: DOXYCYCLINE
     Indication: HIDRADENITIS
     Route: 065
  5. HUMIRA [Suspect]
     Active Substance: ADALIMUMAB
     Indication: HIDRADENITIS
     Route: 058
     Dates: start: 2018
  6. INFLIXIMAB [Suspect]
     Active Substance: INFLIXIMAB
     Indication: HIDRADENITIS
     Route: 065
     Dates: start: 2012, end: 2015
  7. CLINDAMYCIN HYDROCHLORIDE. [Suspect]
     Active Substance: CLINDAMYCIN HYDROCHLORIDE
     Indication: HIDRADENITIS
     Route: 065

REACTIONS (7)
  - Condition aggravated [Unknown]
  - Feeling abnormal [Unknown]
  - Depression [Unknown]
  - Therapeutic product effect incomplete [Unknown]
  - Pain [Unknown]
  - Psychiatric symptom [Unknown]
  - Hidradenitis [Unknown]
